FAERS Safety Report 14303757 (Version 1)
Quarter: 2017Q4

REPORT INFORMATION
  Report Type: Spontaneous
  Country: US (occurrence: US)
  Receive Date: 20171219
  Receipt Date: 20171219
  Transmission Date: 20180321
  Serious: Yes (Hospitalization, Other)
  Sender: FDA-Public Use
  Company Number: US-OTSUKA-DJ20094831

PATIENT
  Sex: Male
  Weight: 100 kg

DRUGS (2)
  1. ABILIFY [Suspect]
     Active Substance: ARIPIPRAZOLE
     Route: 065
     Dates: start: 20080924
  2. ABILIFY [Suspect]
     Active Substance: ARIPIPRAZOLE
     Indication: BIPOLAR DISORDER
     Dosage: 10 MG, UNK
     Route: 065
     Dates: start: 20080514

REACTIONS (9)
  - Night sweats [Unknown]
  - Pollakiuria [Unknown]
  - Blood triglycerides increased [Unknown]
  - Dry mouth [Unknown]
  - Urine analysis abnormal [Unknown]
  - Type 1 diabetes mellitus [Unknown]
  - Pancreatitis [Unknown]
  - Psychomotor hyperactivity [Unknown]
  - Urine abnormality [Unknown]

NARRATIVE: CASE EVENT DATE: 2008
